FAERS Safety Report 8427555-4 (Version None)
Quarter: 2012Q2

REPORT INFORMATION
  Report Type: 
  Country: None (occurrence: None)
  Receive Date: 20120611
  Receipt Date: 20120604
  Transmission Date: 20120825
  Serious: Yes (Life-Threatening)
  Sender: FDA-Public Use
  Company Number: US-TEVA-341808USA

PATIENT

DRUGS (1)
  1. QVAR 40 [Suspect]

REACTIONS (6)
  - PRODUCTIVE COUGH [None]
  - COUGH [None]
  - DYSPNOEA [None]
  - RHINORRHOEA [None]
  - DRUG EFFECT DECREASED [None]
  - PRODUCT SUBSTITUTION ISSUE [None]
